FAERS Safety Report 20323143 (Version 1)
Quarter: 2022Q1

REPORT INFORMATION
  Report Type: Spontaneous
  Country: US (occurrence: None)
  Receive Date: 20220111
  Receipt Date: 20220111
  Transmission Date: 20220424
  Serious: Yes (Life-Threatening)
  Sender: FDA-Public Use
  Company Number: None

PATIENT
  Age: 21 Year
  Sex: Male

DRUGS (1)
  1. .DELTA.8-TETRAHYDROCANNABINOL\HERBALS [Suspect]
     Active Substance: .DELTA.8-TETRAHYDROCANNABINOL\HERBALS
     Indication: Product used for unknown indication
     Dosage: FREQUENCY : AT BEDTIME;?
     Route: 055

REACTIONS (3)
  - Confusional state [None]
  - Amnesia [None]
  - Seizure [None]

NARRATIVE: CASE EVENT DATE: 20211231
